FAERS Safety Report 8502346-4 (Version None)
Quarter: 2012Q3

REPORT INFORMATION
  Report Type: 
  Country: None (occurrence: None)
  Receive Date: 20120711
  Receipt Date: 20120709
  Transmission Date: 20120928
  Serious: Yes (Hospitalization, Other)
  Sender: FDA-Public Use
  Company Number: US-ROXANE LABORATORIES, INC.-2012-RO-01529RO

PATIENT
  Age: 30 Year
  Sex: Male

DRUGS (2)
  1. MERCAPTOPURINE [Suspect]
     Indication: CROHN'S DISEASE
     Dosage: 50 MG
     Route: 048
     Dates: start: 20120201, end: 20120628
  2. ASACOL [Concomitant]
     Indication: CROHN'S DISEASE

REACTIONS (2)
  - HEADACHE [None]
  - WHITE BLOOD CELL COUNT DECREASED [None]
